FAERS Safety Report 9193158 (Version 1)
Quarter: 2013Q1

REPORT INFORMATION
  Report Type: Spontaneous
  Country: US (occurrence: None)
  Receive Date: 20130325
  Receipt Date: 20130325
  Transmission Date: 20140127
  Serious: Yes (Hospitalization, Disabling, Other)
  Sender: FDA-Public Use
  Company Number: None

PATIENT
  Age: 32 Year
  Sex: Female
  Weight: 50.35 kg

DRUGS (3)
  1. CYMBALTA [Suspect]
     Indication: FIBROMYALGIA
     Dosage: 1 ONCE A DAY EVENING PO
     Dates: start: 20090701, end: 20100101
  2. CYMBALTA [Suspect]
     Indication: DEPRESSION
     Dosage: 1 ONCE A DAY EVENING PO
     Dates: start: 20090701, end: 20100101
  3. SAVELLA [Suspect]
     Indication: FIBROMYALGIA
     Dosage: 1 ONCE A DAY EVENING PO
     Dates: start: 20120501, end: 20120906

REACTIONS (7)
  - Tachycardia [None]
  - Transient ischaemic attack [None]
  - Cerebrovascular accident [None]
  - Myocardial strain [None]
  - Dystonia [None]
  - Atrial septal defect [None]
  - Amnesia [None]
